FAERS Safety Report 15190274 (Version 1)
Quarter: 2018Q3

REPORT INFORMATION
  Report Type: Spontaneous
  Country: IT (occurrence: IT)
  Receive Date: 20180724
  Receipt Date: 20180724
  Transmission Date: 20181010
  Serious: Yes (Other)
  Sender: FDA-Public Use
  Company Number: IT-LANNETT COMPANY, INC.-IT-2018LAN000868

PATIENT

DRUGS (3)
  1. PARITAPREVIR [Interacting]
     Active Substance: PARITAPREVIR
     Indication: HEPATIC CIRRHOSIS
     Dosage: UNK
  2. OMBITASVIR [Interacting]
     Active Substance: OMBITASVIR
     Indication: HEPATIC CIRRHOSIS
     Dosage: UNK
  3. LOPINAVIR AND RITONAVIR [Suspect]
     Active Substance: LOPINAVIR\RITONAVIR
     Indication: HEPATIC CIRRHOSIS
     Dosage: UNK

REACTIONS (3)
  - Infection [Unknown]
  - Drug resistance [Unknown]
  - Off label use [Unknown]
